FAERS Safety Report 5292593-X (Version None)
Quarter: 2007Q2

REPORT INFORMATION
  Report Type: 
  Country: None (occurrence: None)
  Receive Date: 20070404
  Receipt Date: 20070327
  Transmission Date: 20071010
  Serious: Yes (Hospitalization)
  Sender: FDA-Public Use
  Company Number: 2007AL001253

PATIENT
  Age: 68 Year
  Sex: Female

DRUGS (12)
  1. MIRTAZAPINE [Suspect]
     Dosage: 30 MG; QD; PO
     Route: 048
     Dates: start: 20060530, end: 20070129
  2. CITALOPRAM HYDROBROMIDE [Suspect]
     Dosage: 20 MG; QD; PO
     Route: 048
     Dates: start: 20070129, end: 20070131
  3. NICORANDIL [Concomitant]
  4. PERINDOPRIL ERBUMINE [Concomitant]
  5. WARFARIN SODIUM [Concomitant]
  6. CO-AMILORIDE [Concomitant]
  7. SENNA [Concomitant]
  8. DIGOXIN [Concomitant]
  9. PARACETAMOL [Concomitant]
  10. DIAZEPAM [Concomitant]
  11. SIMVASTATIN [Concomitant]
  12. CIPRALEX [Concomitant]

REACTIONS (3)
  - DEPERSONALISATION [None]
  - DYSPHAGIA [None]
  - DYSTONIA [None]
